FAERS Safety Report 23359043 (Version 1)
Quarter: 2024Q1

REPORT INFORMATION
  Report Type: Spontaneous
  Country: US (occurrence: US)
  Receive Date: 20240102
  Receipt Date: 20240102
  Transmission Date: 20240410
  Serious: Yes (Other)
  Sender: FDA-Public Use
  Company Number: US-PPDUS-2023ST005324

PATIENT
  Sex: Male

DRUGS (1)
  1. ELZONRIS [Suspect]
     Active Substance: TAGRAXOFUSP-ERZS
     Indication: Product used for unknown indication
     Route: 042
     Dates: start: 20231206, end: 20231214

REACTIONS (7)
  - Acute kidney injury [Unknown]
  - Thrombocytopenia [Recovering/Resolving]
  - Dehydration [Unknown]
  - Inflammation [Unknown]
  - Urinary tract infection [Unknown]
  - Hypoalbuminaemia [Unknown]
  - Pyrexia [Unknown]
